FAERS Safety Report 8462892-9 (Version None)
Quarter: 2012Q2

REPORT INFORMATION
  Report Type: 
  Country: None (occurrence: None)
  Receive Date: 20120625
  Receipt Date: 20120619
  Transmission Date: 20120825
  Serious: No
  Sender: FDA-Public Use
  Company Number: US-PFIZER INC-2012148528

PATIENT
  Sex: Male

DRUGS (3)
  1. LIPITOR [Suspect]
     Dosage: UNK
  2. ACCURETIC [Suspect]
     Dosage: UNK
  3. PROCARDIA XL [Suspect]
     Dosage: UNK

REACTIONS (2)
  - HYPERTENSION [None]
  - BLOOD CHOLESTEROL ABNORMAL [None]
